FAERS Safety Report 9245263 (Version 1)
Quarter: 2013Q1

REPORT INFORMATION
  Report Type: Spontaneous
  Country: US (occurrence: None)
  Receive Date: 20121130
  Receipt Date: 20121130
  Transmission Date: 20140127
  Serious: Yes (Other)
  Sender: FDA-Public Use
  Company Number: PHEH2012US014249

PATIENT
  Age: 79 Year
  Sex: Male

DRUGS (3)
  1. TEKTURNA [Suspect]
     Dosage: 150MG DAILY
     Dates: start: 20111003
  2. NEXIAM (ESOMEPRAZOLE) [Concomitant]
  3. ZANTAC (RANITIDINE HYDROCHLORIDE) [Concomitant]

REACTIONS (2)
  - Hypertension [None]
  - Dizziness [None]
